FAERS Safety Report 5818264-6 (Version None)
Quarter: 2008Q3

REPORT INFORMATION
  Report Type: 
  Country: None (occurrence: None)
  Receive Date: 20080717
  Receipt Date: 20080707
  Transmission Date: 20090109
  Serious: Yes (Life-Threatening)
  Sender: FDA-Public Use
  Company Number: 002016

PATIENT
  Age: 5 Year
  Sex: Female

DRUGS (6)
  1. BUSULFEX [Suspect]
     Indication: STEM CELL TRANSPLANT
     Dosage: 11.2 ML, DAILY DOSE
     Dates: start: 20070215, end: 20070218
  2. CYCLOPHOSPHAMIDE [Concomitant]
  3. PHENYTOIN [Concomitant]
  4. FILGRASTIM (FILGRASTIM) [Concomitant]
  5. CYCLOSPORINE [Concomitant]
  6. METHYLPREDNISOLONE [Concomitant]

REACTIONS (5)
  - ANOREXIA [None]
  - CONVULSION [None]
  - DIARRHOEA [None]
  - GRAFT VERSUS HOST DISEASE [None]
  - GRAND MAL CONVULSION [None]
